FAERS Safety Report 4475159-0 (Version None)
Quarter: 2004Q4

REPORT INFORMATION
  Report Type: 
  Country: None (occurrence: None)
  Receive Date: 20041013
  Receipt Date: 20041013
  Transmission Date: 20050328
  Serious: Yes (Hospitalization)
  Sender: FDA-Public Use
  Company Number: None

PATIENT
  Age: 59 Year
  Sex: Male

DRUGS (7)
  1. AMITRIPTYLINE HCL [Suspect]
  2. NEORAL [Concomitant]
  3. MYCOPHENOLATE MOFETIL -CELLCEPT [Concomitant]
  4. ZOVIRAX [Concomitant]
  5. AMITRIPTYLINE -ELAVIL [Concomitant]
  6. PENICILLIN [Concomitant]
  7. OXYCODONE [Concomitant]

REACTIONS (4)
  - BLOOD OSMOLARITY DECREASED [None]
  - COMPLICATIONS OF TRANSPLANT SURGERY [None]
  - HYPONATRAEMIA [None]
  - POLYDIPSIA [None]
